FAERS Safety Report 7445103-2 (Version None)
Quarter: 2011Q2

REPORT INFORMATION
  Report Type: 
  Country: None (occurrence: None)
  Receive Date: 20110429
  Receipt Date: 20091122
  Transmission Date: 20111010
  Serious: Yes (Death, Hospitalization, Other)
  Sender: FDA-Public Use
  Company Number: US-BAYER-200940600NA

PATIENT
  Age: 64 Year
  Sex: Male
  Weight: 140.59 kg

DRUGS (25)
  1. AMIODARONE HCL [Concomitant]
     Dosage: 100 MG, QD
     Route: 048
  2. SUPRANE [Concomitant]
     Dosage: 0.5 UNK, UNK
     Route: 042
     Dates: start: 20030126
  3. ENALAPRIL MALEATE [Concomitant]
     Dosage: 2.5 MG, BID
     Route: 048
  4. COUMADIN [Concomitant]
     Dosage: UNK
     Route: 048
  5. TRASYLOL [Suspect]
     Indication: AORTIC ANEURYSM REPAIR
     Dosage: 100 ML, ONCE
     Route: 042
     Dates: start: 20030127, end: 20030127
  6. NEXIUM [Concomitant]
     Dosage: 40 MG, QD
     Route: 048
  7. DOBUTAMINE HYDROCHLORIDE [Concomitant]
     Dosage: 10 MG/KG, UNK
     Route: 042
     Dates: start: 20030126
  8. PROTAMINE SULFATE [Concomitant]
     Dosage: 350 MG, UNK
     Route: 042
     Dates: start: 20030126
  9. CRYOPRECIPITATES [Concomitant]
     Dosage: 4 U, UNK
     Dates: start: 20030127
  10. FRESH FROZEN PLASMA [Concomitant]
     Dosage: 4 U, UNK
     Dates: start: 20030127
  11. DIGOXIN [Concomitant]
     Dosage: 0.125 MG, QD
     Route: 048
  12. ZOLOFT [Concomitant]
     Dosage: 200 MG, QD
     Route: 048
  13. REMERON [Concomitant]
     Dosage: 15 MG, HS
     Route: 048
  14. LEVOPHED [Concomitant]
     Dosage: 10 MG, UNK
     Route: 042
     Dates: start: 20030126
  15. HEPARIN [Concomitant]
     Dosage: 65000 U, UNK
     Route: 042
     Dates: start: 20030126
  16. TRASYLOL [Suspect]
     Indication: ARTERIAL THERAPEUTIC PROCEDURE
     Dosage: 25 ML, Q1HR
     Route: 042
     Dates: start: 20030127, end: 20030127
  17. TRASYLOL [Suspect]
     Indication: SURGERY
     Dosage: 100 ML, UNK
     Route: 042
     Dates: start: 20030127, end: 20030127
  18. PLATELETS [Concomitant]
     Dosage: 8 U, UNK
     Dates: start: 20030127
  19. LASIX [Concomitant]
     Dosage: 40 MG, QD
     Route: 048
  20. NEURONTIN [Concomitant]
     Dosage: 300 MG, TID
     Route: 048
  21. VERSED [Concomitant]
     Dosage: 3-5 MG, UNK
     Route: 042
     Dates: start: 20030126
  22. VANCOMYCIN [Concomitant]
     Dosage: 18 UNK, UNK
     Route: 042
     Dates: start: 20030126
  23. ISOSORBIDE MONONITRATE [Concomitant]
     Dosage: 15 MG, QD
     Route: 048
  24. ZEMURON [Concomitant]
     Dosage: 50 UNK, UNK
     Route: 042
  25. EPINEPHRINE [Concomitant]
     Dosage: 5 MG/250 ML, UNK
     Route: 042
     Dates: start: 20030126

REACTIONS (15)
  - RENAL IMPAIRMENT [None]
  - RENAL INJURY [None]
  - EMOTIONAL DISTRESS [None]
  - ANXIETY [None]
  - INJURY [None]
  - PAIN [None]
  - DEATH [None]
  - STRESS [None]
  - UNEVALUABLE EVENT [None]
  - MULTI-ORGAN FAILURE [None]
  - RENAL FAILURE [None]
  - CEREBROVASCULAR ACCIDENT [None]
  - ANHEDONIA [None]
  - DEPRESSION [None]
  - FEAR [None]
